FAERS Safety Report 4409458-5 (Version None)
Quarter: 2004Q3

REPORT INFORMATION
  Report Type: 
  Country: None (occurrence: None)
  Receive Date: 20040723
  Receipt Date: 20040714
  Transmission Date: 20050211
  Serious: Yes (Other)
  Sender: FDA-Public Use
  Company Number: US-SHR-03-008699

PATIENT
  Age: 41 Year
  Sex: Female
  Weight: 78.9 kg

DRUGS (5)
  1. FLUDARA [Suspect]
     Indication: CHRONIC LYMPHOCYTIC LEUKAEMIA
     Dosage: 30 MG/D, X 5D EVERY 28 DAYS, INTRAVENOUS; SEE IMAGE
     Route: 042
     Dates: start: 20030101, end: 20030603
  2. FLUDARA [Suspect]
     Indication: CHRONIC LYMPHOCYTIC LEUKAEMIA
     Dosage: 30 MG/D, X 5D EVERY 28 DAYS, INTRAVENOUS; SEE IMAGE
     Route: 042
     Dates: start: 19950101
  3. FLUDARA [Suspect]
     Indication: CHRONIC LYMPHOCYTIC LEUKAEMIA
     Dosage: 30 MG/D, X 5D EVERY 28 DAYS, INTRAVENOUS; SEE IMAGE
     Route: 042
     Dates: start: 20040126
  4. COUMADIN [Concomitant]
  5. TRANXENE [Concomitant]

REACTIONS (4)
  - DRUG EXPOSURE DURING PREGNANCY [None]
  - PREGNANCY [None]
  - PREMATURE BABY [None]
  - PREMATURE RUPTURE OF MEMBRANES [None]
